FAERS Safety Report 5977351-2 (Version None)
Quarter: 2008Q4

REPORT INFORMATION
  Report Type: 
  Country: None (occurrence: None)
  Receive Date: 20081203
  Receipt Date: 20081124
  Transmission Date: 20090506
  Serious: Yes (Other)
  Sender: FDA-Public Use
  Company Number: PHHY2008BR29864

PATIENT
  Age: 77 Year
  Sex: Female
  Weight: 72 kg

DRUGS (3)
  1. EXELON [Suspect]
     Indication: DEMENTIA ALZHEIMER'S TYPE
     Dosage: 1.5 MG
     Route: 048
     Dates: start: 20000101
  2. EXELON [Suspect]
     Dosage: 6 MG
  3. NEOZINE [Concomitant]
     Indication: INSOMNIA
     Dosage: 3 DROPS AT NIGHT
     Route: 048

REACTIONS (7)
  - APATHY [None]
  - DECREASED ACTIVITY [None]
  - DEMENTIA ALZHEIMER'S TYPE [None]
  - DEPRESSION [None]
  - HEPATIC ENZYME INCREASED [None]
  - HEPATITIS [None]
  - SPEECH DISORDER [None]
